FAERS Safety Report 8539587-6 (Version None)
Quarter: 2012Q3

REPORT INFORMATION
  Report Type: 
  Country: None (occurrence: None)
  Receive Date: 20120726
  Receipt Date: 20120724
  Transmission Date: 20120928
  Serious: Yes (Death)
  Sender: FDA-Public Use
  Company Number: FR-ELI_LILLY_AND_COMPANY-FR201207007096

PATIENT
  Sex: Male

DRUGS (2)
  1. CISPLATIN [Concomitant]
     Indication: LUNG NEOPLASM MALIGNANT
     Dosage: 126 MG, UNK
     Dates: start: 20120320, end: 20120410
  2. ALIMTA [Suspect]
     Indication: LUNG NEOPLASM MALIGNANT
     Dosage: 850 MG, UNK
     Route: 042
     Dates: start: 20120320

REACTIONS (1)
  - CARDIO-RESPIRATORY ARREST [None]
